FAERS Safety Report 23685989 (Version 1)
Quarter: 2024Q1

REPORT INFORMATION
  Report Type: Spontaneous
  Country: US (occurrence: US)
  Receive Date: 20240329
  Receipt Date: 20240329
  Transmission Date: 20240409
  Serious: No
  Sender: FDA-Public Use
  Company Number: US-Indivior Limited-INDV-143219-2024

PATIENT

DRUGS (1)
  1. OPVEE [Suspect]
     Active Substance: NALMEFENE HYDROCHLORIDE
     Indication: Overdose
     Dosage: 2.7 MILLIGRAM
     Route: 045

REACTIONS (2)
  - Feeling cold [Unknown]
  - Nausea [Unknown]
